FAERS Safety Report 5155376-7 (Version None)
Quarter: 2006Q4

REPORT INFORMATION
  Report Type: 
  Country: None (occurrence: None)
  Receive Date: 20061121
  Receipt Date: 20061110
  Transmission Date: 20070319
  Serious: Yes (Hospitalization)
  Sender: FDA-Public Use
  Company Number: ES-ELI_LILLY_AND_COMPANY-ES200611003539

PATIENT
  Age: 42 Year
  Sex: Female

DRUGS (2)
  1. FORTEO [Suspect]
     Indication: OSTEOPOROSIS
     Dosage: 20 UG, DAILY (1/D)
     Route: 058
     Dates: start: 20060501
  2. CALCIUM [Concomitant]
     Indication: OSTEOPOROSIS

REACTIONS (3)
  - ARTHRITIS [None]
  - LOCALISED INFECTION [None]
  - RHEUMATOID ARTHRITIS [None]
